FAERS Safety Report 8956781 (Version 1)
Quarter: 2012Q4

REPORT INFORMATION
  Report Type: 
  Country: RS (occurrence: RS)
  Receive Date: 20121211
  Receipt Date: 20121211
  Transmission Date: 20130627
  Serious: Yes (Hospitalization, Other)
  Sender: FDA-Public Use
  Company Number: RS-PAR PHARMACEUTICAL, INC-2012SCPR004749

PATIENT

DRUGS (9)
  1. METRONIDAZOLE [Suspect]
     Indication: CLOSTRIDIAL INFECTION
     Dosage: 500 mg, three times daily
     Route: 065
  2. TACROLIMUS [Suspect]
     Indication: IMMUNOSUPPRESSANT DRUG THERAPY
     Dosage: 4.5 mg, twice daily
     Route: 065
  3. TACROLIMUS [Suspect]
     Dosage: 2 mg, twice daily
     Route: 065
  4. TACROLIMUS [Suspect]
     Dosage: 1 mg, twice daily
     Route: 065
  5. TACROLIMUS [Suspect]
     Dosage: 3 mg, per day
     Route: 065
  6. MYCOPHENOLATE MOFETIL [Concomitant]
     Indication: IMMUNOSUPPRESSANT DRUG THERAPY
     Dosage: 500 mg, twice daily
     Route: 065
  7. PREDNISONE [Concomitant]
     Indication: IMMUNOSUPPRESSANT DRUG THERAPY
     Dosage: 20 mg, daily
     Route: 065
  8. CARVEDILOL [Concomitant]
     Indication: PRODUCT USED FOR UNKNOWN INDICATION
     Dosage: 6.25 mg, twice daily
     Route: 065
  9. METHYLDOPA [Concomitant]
     Indication: PRODUCT USED FOR UNKNOWN INDICATION
     Dosage: 500 mg, three times daily
     Route: 065

REACTIONS (5)
  - Drug interaction [Recovered/Resolved]
  - Blood creatinine increased [Recovered/Resolved]
  - Metabolic acidosis [Recovering/Resolving]
  - Dehydration [Recovering/Resolving]
  - Hypomagnesaemia [Recovered/Resolved]
